FAERS Safety Report 18860870 (Version 2)
Quarter: 2021Q1

REPORT INFORMATION
  Report Type: Spontaneous
  Country: FR (occurrence: FR)
  Receive Date: 20210208
  Receipt Date: 20210218
  Transmission Date: 20210420
  Serious: Yes (Other)
  Sender: FDA-Public Use
  Company Number: NVSC2021FR021810

PATIENT
  Age: 4 Year
  Sex: Male
  Weight: 17 kg

DRUGS (2)
  1. HYDROCHLOROTHIAZIDE. [Suspect]
     Active Substance: HYDROCHLOROTHIAZIDE
     Indication: ACCIDENTAL EXPOSURE TO PRODUCT BY CHILD
     Dosage: 6.25 MG, ONCE/SINGLE
     Route: 048
     Dates: start: 20201010, end: 20201010
  2. BISOPROLOL [Suspect]
     Active Substance: BISOPROLOL
     Indication: ACCIDENTAL EXPOSURE TO PRODUCT BY CHILD
     Dosage: 5 MG, ONCE/SINGLE
     Route: 048
     Dates: start: 20201010, end: 20201010

REACTIONS (3)
  - Accidental exposure to product by child [Recovered/Resolved]
  - Accidental overdose [Recovered/Resolved]
  - Hypotension [Recovered/Resolved]

NARRATIVE: CASE EVENT DATE: 20201010
